FAERS Safety Report 8857735 (Version 1)
Quarter: 2012Q4

REPORT INFORMATION
  Report Type: Report from Study
  Country: US (occurrence: US)
  Receive Date: 20121024
  Receipt Date: 20121024
  Transmission Date: 20130627
  Serious: Yes (Hospitalization)
  Sender: FDA-Public Use
  Company Number: US-PFIZER INC-2012228555

PATIENT
  Age: 61 Year
  Sex: Female

DRUGS (30)
  1. IRINOTECAN HCL [Suspect]
     Indication: COLORECTAL CANCER METASTATIC
     Dosage: 150 mg/Sq. Meter, 1 day
     Route: 042
     Dates: start: 20120802
  2. BRIVANIB [Suspect]
     Indication: COLORECTAL CANCER METASTATIC
     Dosage: 600 mg, 1 day
     Route: 048
     Dates: start: 20120802
  3. COLACE [Concomitant]
  4. FISH OIL [Concomitant]
  5. FLONASE [Concomitant]
  6. GLUTAMINE [Concomitant]
  7. IMODIUM [Concomitant]
  8. LASIX [Concomitant]
  9. LOMOTIL [Concomitant]
  10. METOPROLOL SUCCINATE [Concomitant]
  11. MIRALAX [Concomitant]
  12. RECLAST [Concomitant]
  13. SENNA-S [Concomitant]
  14. SPIRONOLACTONE [Concomitant]
  15. SUDAFED [Concomitant]
  16. SYSTANE [Concomitant]
  17. ULTRACET [Concomitant]
  18. VITAMIN B COMPLEX [Concomitant]
  19. VITAMIN C [Concomitant]
  20. FOLIC ACID [Concomitant]
  21. VITAMIN D3 [Concomitant]
  22. XANAX [Concomitant]
  23. ZOFRAN [Concomitant]
  24. TRAMADOL [Concomitant]
  25. PROMETHAZINE [Concomitant]
  26. PRILOSEC [Concomitant]
  27. PHENERGAN [Concomitant]
  28. ABH [Concomitant]
  29. ATIVAN [Concomitant]
  30. BENTYL [Concomitant]

REACTIONS (3)
  - Vomiting [Unknown]
  - Abdominal pain [Unknown]
  - Small intestinal obstruction [Recovered/Resolved]
